FAERS Safety Report 8181115-1 (Version None)
Quarter: 2012Q1

REPORT INFORMATION
  Report Type: 
  Country: None (occurrence: None)
  Receive Date: 20120302
  Receipt Date: 20120223
  Transmission Date: 20120608
  Serious: Yes (Other)
  Sender: FDA-Public Use
  Company Number: US-BAYER-2011-077145

PATIENT
  Age: 40 Year
  Sex: Female
  Weight: 108.84 kg

DRUGS (9)
  1. YASMIN [Suspect]
     Dosage: UNK
     Dates: start: 20070101
  2. NAPROXEN [Concomitant]
     Dosage: 375 MG, UNK
     Dates: start: 20071104
  3. DROSPIRENONE AND ETHINYL ESTRADIOL [Suspect]
     Dosage: UNK
     Route: 048
     Dates: start: 20070101
  4. PREMARIN [Concomitant]
     Dosage: UNK
  5. MISOPROSTOL [Concomitant]
     Dosage: UNK
     Dates: start: 20071015
  6. MULTI-VITAMINS [Concomitant]
     Route: 048
  7. YAZ [Suspect]
     Dosage: UNK
     Route: 048
     Dates: start: 20070101
  8. OXYCODONE HCL AND ACETAMINOPHEN [Concomitant]
     Dosage: 5MG /325 MG
     Route: 048
     Dates: start: 20071104
  9. DIAZEPAM [Concomitant]
     Dosage: UNK
     Route: 048
     Dates: start: 20071015

REACTIONS (3)
  - PAIN [None]
  - DEEP VEIN THROMBOSIS [None]
  - INJURY [None]
